FAERS Safety Report 5346256-2 (Version None)
Quarter: 2007Q2

REPORT INFORMATION
  Report Type: 
  Country: None (occurrence: None)
  Receive Date: 20070420
  Receipt Date: 20060329
  Transmission Date: 20071010
  Serious: Yes (Death, Hospitalization)
  Sender: FDA-Public Use
  Company Number: 06P-163-0329276-00

PATIENT
  Age: 25 Year
  Sex: Male
  Weight: 90.7194 kg

DRUGS (3)
  1. DEPAKOTE [Suspect]
     Indication: MENTAL DISORDER
     Dosage: 500 MG, 4 IN 1 D, PER ORAL
     Route: 048
     Dates: start: 20051101, end: 20060129
  2. LORAZEPAM [Concomitant]
  3. ZIPRASIDONE HCL [Concomitant]

REACTIONS (1)
  - PANCREATITIS [None]
